FAERS Safety Report 16811200 (Version 1)
Quarter: 2020Q3

REPORT INFORMATION
  Report Type: Report from Study
  Country: US (occurrence: US)
  Receive Date: 20190916
  Receipt Date: 20190916
  Transmission Date: 20201104
  Serious: Yes (Other)
  Sender: FDA-Public Use
  Company Number: US-INGENUS PHARMACEUTICALS, LLC-2019INF000282

PATIENT

DRUGS (3)
  1. CARBOPLATIN. [Suspect]
     Active Substance: CARBOPLATIN
     Indication: NON-SMALL CELL LUNG CANCER STAGE IV
     Dosage: AUC 6, ONCE EVERY 21 DAYS
     Route: 065
  2. PACLITAXEL. [Suspect]
     Active Substance: PACLITAXEL
     Indication: NON-SMALL CELL LUNG CANCER STAGE IV
     Dosage: 200 MILLIGRAM/SQ. METER, ONCE EVERY 21 DAYS
     Route: 065
  3. FP?1039. [Suspect]
     Active Substance: FP-1039
     Indication: NON-SMALL CELL LUNG CANCER STAGE IV
     Dosage: STARTING DOSE WAS 5 MG/KG, DOSE LEVELS 1 AND 2 WERE 10 MG/KG AND 20 MG/KG, 1 TIMES A WEEK
     Route: 042

REACTIONS (1)
  - Diabetes mellitus [Unknown]
